FAERS Safety Report 4732263-7 (Version None)
Quarter: 2005Q3

REPORT INFORMATION
  Report Type: 
  Country: None (occurrence: None)
  Receive Date: 20050801
  Receipt Date: 20050714
  Transmission Date: 20060218
  Serious: Yes (Hospitalization)
  Sender: FDA-Public Use
  Company Number: 2005BI013319

PATIENT
  Age: 36 Year
  Sex: Female
  Weight: 46.7205 kg

DRUGS (1)
  1. AVONEX [Suspect]
     Indication: MULTIPLE SCLEROSIS
     Dosage: 30 UG; QW; IM
     Route: 030
     Dates: start: 20040428, end: 20041020

REACTIONS (2)
  - BLINDNESS [None]
  - OPTIC NEUROPATHY [None]
